FAERS Safety Report 9626548 (Version 3)
Quarter: 2014Q1

REPORT INFORMATION
  Report Type: Spontaneous
  Country: US (occurrence: US)
  Receive Date: 20131016
  Receipt Date: 20140207
  Transmission Date: 20141002
  Serious: Yes (Life-Threatening, Hospitalization, Other)
  Sender: FDA-Public Use
  Company Number: US-BAYER-2013-121165

PATIENT
  Age: 37 Year
  Sex: Female
  Weight: 112 kg

DRUGS (2)
  1. MIRENA [Suspect]
     Indication: CONTRACEPTION
     Dosage: 20 MCG/24HR, CONT
     Route: 015
     Dates: start: 20030227, end: 20030303
  2. ORAL CONTRACEPTIVE NOS [Concomitant]
     Dosage: UNK
     Dates: start: 2001

REACTIONS (10)
  - Uterine perforation [None]
  - Pain [None]
  - Injury [None]
  - General physical health deterioration [None]
  - Intra-abdominal haemorrhage [None]
  - Stress [None]
  - Anxiety [None]
  - Anhedonia [None]
  - Depression [None]
  - Anxiety [None]
